FAERS Safety Report 24794738 (Version 1)
Quarter: 2024Q4

REPORT INFORMATION
  Report Type: Spontaneous
  Country: RO (occurrence: RO)
  Receive Date: 20241231
  Receipt Date: 20241231
  Transmission Date: 20250114
  Serious: Yes (Life-Threatening, Other)
  Sender: MERCK
  Company Number: RO-009507513-2412ROU009967

PATIENT
  Age: 47 Year
  Sex: Male

DRUGS (13)
  1. RECARBRIO [Suspect]
     Active Substance: CILASTATIN\IMIPENEM ANHYDROUS\RELEBACTAM ANHYDROUS
     Indication: Pseudomonas infection
     Dosage: STRENGTH: 500/500MG X250MG, 20ML X 25FLAC; DOSE: 1 VIAL/6H 100 MILLILITER
     Route: 042
     Dates: start: 20241219, end: 20241219
  2. MAGNESIUM SULFATE [Suspect]
     Active Substance: MAGNESIUM SULFATE
  3. AMFOTERICINA [Concomitant]
     Indication: Rhinocerebral mucormycosis
     Dosage: 50 MILLIGRAM, 5 TIMES PER DAY; ROUTE OF ADMINISTRATION: INFUSION
     Route: 042
  4. AMFOTERICINA [Concomitant]
     Indication: Pseudomonas infection
  5. AMFOTERICINA [Concomitant]
     Indication: Klebsiella infection
  6. CRESEMBA [Concomitant]
     Active Substance: ISAVUCONAZONIUM SULFATE
     Indication: Pseudomonas infection
     Dosage: 100 MILLIGRAM, BID
  7. CRESEMBA [Concomitant]
     Active Substance: ISAVUCONAZONIUM SULFATE
     Indication: Klebsiella infection
  8. CRESEMBA [Concomitant]
     Active Substance: ISAVUCONAZONIUM SULFATE
     Indication: Rhinocerebral mucormycosis
  9. AVIBACTAM SODIUM\CEFTAZIDIME [Concomitant]
     Active Substance: AVIBACTAM SODIUM\CEFTAZIDIME
     Indication: Pseudomonas infection
     Dosage: 2 GRAM, BID; ROUTE OF ADMINISTRATION: INFUSION
     Route: 042
  10. AVIBACTAM SODIUM\CEFTAZIDIME [Concomitant]
     Active Substance: AVIBACTAM SODIUM\CEFTAZIDIME
     Indication: Klebsiella infection
  11. AVIBACTAM SODIUM\CEFTAZIDIME [Concomitant]
     Active Substance: AVIBACTAM SODIUM\CEFTAZIDIME
     Indication: Rhinocerebral mucormycosis
  12. AZACTAM [Concomitant]
     Active Substance: AZTREONAM
     Indication: Klebsiella infection
     Dosage: 1 GRAM 9/DAILY, ROUTE OF ADMINISTRATION: INFUSION
     Route: 042
  13. LINEZOLID [Concomitant]
     Active Substance: LINEZOLID
     Indication: Enterococcal infection
     Dosage: 2 (UNIT NOT REPORTED)/DAILY; ROUTE OF ADMINISTRATION: INFUSION
     Route: 042

REACTIONS (5)
  - Epilepsy [Recovered/Resolved]
  - Hypertension [Unknown]
  - Oxygen saturation decreased [Recovered/Resolved]
  - Bladder instillation procedure [Unknown]
  - Sleep disorder [Not Recovered/Not Resolved]

NARRATIVE: CASE EVENT DATE: 20241219
